FAERS Safety Report 7619504-3 (Version None)
Quarter: 2011Q3

REPORT INFORMATION
  Report Type: 
  Country: None (occurrence: None)
  Receive Date: 20110719
  Receipt Date: 20110623
  Transmission Date: 20111222
  Serious: No
  Sender: FDA-Public Use
  Company Number: US-ROXANE LABORATORIES, INC.-2011-RO-00891RO

PATIENT
  Age: 73 Year
  Sex: Female

DRUGS (1)
  1. LITHIUM CARBONATE [Suspect]
     Indication: BIPOLAR DISORDER
     Dosage: 750 MG
     Route: 048

REACTIONS (3)
  - PAIN IN EXTREMITY [None]
  - ARTHRITIS [None]
  - PSORIASIS [None]
